FAERS Safety Report 21810675 (Version 1)
Quarter: 2023Q1

REPORT INFORMATION
  Report Type: Spontaneous
  Country: US (occurrence: US)
  Receive Date: 20230103
  Receipt Date: 20230103
  Transmission Date: 20230417
  Serious: No
  Sender: FDA-Public Use
  Company Number: US-BIOVITRUM-2023US00080

PATIENT
  Sex: Male
  Weight: 12 kg

DRUGS (2)
  1. SYNAGIS [Suspect]
     Active Substance: PALIVIZUMAB
     Indication: Congenital aortic valve stenosis
     Dates: start: 20211020
  2. SYNAGIS [Suspect]
     Active Substance: PALIVIZUMAB
     Indication: Coarctation of the aorta

REACTIONS (1)
  - Ear infection [Unknown]
